FAERS Safety Report 15331210 (Version 2)
Quarter: 2018Q3

REPORT INFORMATION
  Report Type: Not Available
  Country: US (occurrence: US)
  Receive Date: 20180829
  Receipt Date: 20180918
  Transmission Date: 20181010
  Serious: Yes (Hospitalization)
  Sender: FDA-Public Use
  Company Number: US-NEUROCRINE BIOSCIENCES INC.-2018NBI02515

PATIENT
  Age: 77 Year
  Sex: Male

DRUGS (28)
  1. PRILOSEC [Concomitant]
     Active Substance: OMEPRAZOLE MAGNESIUM
  2. INGREZZA [Suspect]
     Active Substance: VALBENAZINE
     Dosage: ONCE A DAY IN THE MORNING
     Dates: start: 2018
  3. HYDROXYZINE [Concomitant]
     Active Substance: HYDROXYZINE HYDROCHLORIDE
     Indication: ANXIETY
     Dosage: ONE TABLET TAKEN AT BEDTIME
  4. QUETIAPINE. [Concomitant]
     Active Substance: QUETIAPINE
     Indication: PSYCHOTIC DISORDER
     Dosage: ONE IN THE MORNING AND AT BEDTIME
  5. VITAMIN D3 [Concomitant]
     Active Substance: CHOLECALCIFEROL
  6. VIIBRYD [Concomitant]
     Active Substance: VILAZODONE HYDROCHLORIDE
     Indication: DEPRESSION
     Dosage: 2 TABLETS TAKEN IN THE MORNING
  7. ACETAMINOPHEN. [Concomitant]
     Active Substance: ACETAMINOPHEN
  8. KLONOPIN [Concomitant]
     Active Substance: CLONAZEPAM
     Indication: ANXIETY
  9. ECOTRIN [Concomitant]
     Active Substance: ASPIRIN
     Indication: CARDIAC DISORDER
     Dosage: ONE TABLET TAKEN AROUND 4 PM
  10. SEROQUEL [Concomitant]
     Active Substance: QUETIAPINE FUMARATE
     Indication: PSYCHOTIC DISORDER
  11. INGREZZA [Suspect]
     Active Substance: VALBENAZINE
  12. ATENOLOL. [Concomitant]
     Active Substance: ATENOLOL
     Indication: CARDIAC DISORDER
     Dosage: ONE TABLET TAKEN DAILY IN THE EVENING FOR HIS HEART
  13. VIIBRYD [Concomitant]
     Active Substance: VILAZODONE HYDROCHLORIDE
  14. RAMELTEON [Concomitant]
     Active Substance: RAMELTEON
     Indication: INSOMNIA
     Dosage: AT BEDTIME
  15. BREO ELLIPTA [Concomitant]
     Active Substance: FLUTICASONE FUROATE\VILANTEROL TRIFENATATE
     Indication: CHRONIC OBSTRUCTIVE PULMONARY DISEASE
     Dosage: 1 PUFF DAILY IN THE MORNING
  16. INGREZZA [Suspect]
     Active Substance: VALBENAZINE
     Indication: TARDIVE DYSKINESIA
     Route: 048
     Dates: start: 20170705, end: 2018
  17. AMOXICILLIN. [Concomitant]
     Active Substance: AMOXICILLIN
  18. MUCINEX [Concomitant]
     Active Substance: GUAIFENESIN
     Indication: PULMONARY CONGESTION
     Dosage: ONE IN THE MORNING AND ONE AT NIGHT
  19. ALLOPURINOL. [Concomitant]
     Active Substance: ALLOPURINOL
     Indication: GOUT
     Dosage: ONE TABLET DAILY
  20. MIRALAX [Concomitant]
     Active Substance: POLYETHYLENE GLYCOL 3350
     Dosage: ONE TAKEN IN THE MORNING WITH HIS ORANGE JUICE
  21. SINGULAIR [Concomitant]
     Active Substance: MONTELUKAST SODIUM
     Indication: ASTHMA
     Dosage: ONE TABLET TAKEN AT 4 PM
  22. ALBUTEROL SULFATE. [Concomitant]
     Active Substance: ALBUTEROL SULFATE
     Indication: CHRONIC OBSTRUCTIVE PULMONARY DISEASE
     Dosage: 2.5 MG/ 2 ML (NEBULIZER) IN MORNING AND EVENING, TROUBLE WITH MUCUS IT IS TAKEN IN THE AFTERNOON TOO
  23. MULTIVITAMINS [Concomitant]
     Active Substance: VITAMINS
     Dosage: MULTIVITAMIN THAT CONTAINS A PROBIOTIC
  24. OMEGA 3 FISH OIL [Concomitant]
     Active Substance: FISH OIL\OMEGA-3 FATTY ACIDS
     Indication: CARDIAC DISORDER
     Dosage: 900 MG TO 1400 MG CAPSULE TAKEN ONE A DAY FOR HIS HEART
  25. ROZEREM [Concomitant]
     Active Substance: RAMELTEON
     Indication: INSOMNIA
     Dosage: TAKEN HALF A TABLET AT BEDTIME
  26. TRAZODONE [Concomitant]
     Active Substance: TRAZODONE HYDROCHLORIDE
  27. COLACE [Concomitant]
     Active Substance: DOCUSATE SODIUM
     Indication: FAECES SOFT
     Dosage: TAKEN ONE CAPSULE IN THE MORNING AND ONE IN THE EVENING/AFTERNOON
  28. TYLENOL [Concomitant]
     Active Substance: ACETAMINOPHEN
     Indication: PAIN

REACTIONS (6)
  - Fluid retention [Unknown]
  - Pneumonia aspiration [Recovered/Resolved]
  - Miliaria [Unknown]
  - Pruritus genital [Recovered/Resolved]
  - Urinary tract infection [Recovered/Resolved]
  - Lethargy [Recovered/Resolved]

NARRATIVE: CASE EVENT DATE: 201808
